FAERS Safety Report 7734626-4 (Version None)
Quarter: 2011Q3

REPORT INFORMATION
  Report Type: 
  Country: None (occurrence: None)
  Receive Date: 20110907
  Receipt Date: 20110902
  Transmission Date: 20111222
  Serious: Yes (Other)
  Sender: FDA-Public Use
  Company Number: US-PFIZER INC-2011206101

PATIENT
  Sex: Male
  Weight: 106.57 kg

DRUGS (4)
  1. CARDURA [Suspect]
     Indication: PROSTATIC DISORDER
     Dosage: 8 MG, DAILY
     Dates: start: 20080101
  2. CARDURA [Suspect]
     Indication: DYSURIA
     Dosage: 4 MG, DAILY
     Dates: start: 20050101
  3. CARDURA [Suspect]
     Indication: PROSTATIC SPECIFIC ANTIGEN INCREASED
  4. MODAFINIL [Concomitant]
     Indication: HYPERVIGILANCE
     Dosage: 200 MG, AS NEEDED

REACTIONS (1)
  - PLATELET COUNT DECREASED [None]
